FAERS Safety Report 12667238 (Version 1)
Quarter: 2016Q3

REPORT INFORMATION
  Report Type: Spontaneous
  Country: IT (occurrence: IT)
  Receive Date: 20160819
  Receipt Date: 20160819
  Transmission Date: 20161109
  Serious: Yes (Life-Threatening)
  Sender: FDA-Public Use
  Company Number: IT-TEVA-684799ACC

PATIENT
  Age: 51 Year
  Sex: Male

DRUGS (6)
  1. FLUIMUCIL [Suspect]
     Active Substance: ACETYLCYSTEINE
     Indication: INTENTIONAL SELF-INJURY
     Dates: start: 20160726, end: 20160726
  2. TACHIPIRINA [Suspect]
     Active Substance: ACETAMINOPHEN
     Indication: INTENTIONAL SELF-INJURY
     Dates: start: 20160726, end: 20160726
  3. TACHIDOL - AZIENDE CHIMICHE RIUNITE ANGELINI FRANCESCO ACRAF SPA [Suspect]
     Active Substance: ACETAMINOPHEN\CODEINE PHOSPHATE
     Indication: INTENTIONAL SELF-INJURY
     Dates: start: 20160726, end: 20160726
  4. LERCAPREL - INNOVA PHARMA S.P.A. [Suspect]
     Active Substance: ENALAPRIL MALEATE\LERCANIDIPINE HYDROCHLORIDE
     Indication: INTENTIONAL SELF-INJURY
     Dates: start: 20160726, end: 20160726
  5. BISOPROLOL FUMARATE. [Suspect]
     Active Substance: BISOPROLOL FUMARATE
     Indication: INTENTIONAL SELF-INJURY
     Dates: start: 20160726, end: 20160726
  6. MOTILIUM [Suspect]
     Active Substance: DOMPERIDONE
     Indication: INTENTIONAL SELF-INJURY
     Route: 048
     Dates: start: 20160726, end: 20160726

REACTIONS (6)
  - Overdose [Unknown]
  - Vomiting [Unknown]
  - Sopor [Unknown]
  - Intentional overdose [None]
  - Intentional self-injury [Unknown]
  - Chemical poisoning [None]

NARRATIVE: CASE EVENT DATE: 20160726
